FAERS Safety Report 6742709-0 (Version None)
Quarter: 2010Q2

REPORT INFORMATION
  Report Type: 
  Country: None (occurrence: None)
  Receive Date: 20100526
  Receipt Date: 20091022
  Transmission Date: 20101027
  Serious: No
  Sender: FDA-Public Use
  Company Number: US-ABBOTT-09P-163-0605154-00

PATIENT
  Sex: Female
  Weight: 71.732 kg

DRUGS (2)
  1. ZEMPLAR [Suspect]
     Indication: RENAL FAILURE CHRONIC
     Route: 048
     Dates: start: 20090601
  2. LIPITOR [Concomitant]
     Indication: HYPERTENSION
     Route: 048

REACTIONS (1)
  - WOUND INFECTION [None]
